FAERS Safety Report 7562007-5 (Version None)
Quarter: 2011Q2

REPORT INFORMATION
  Report Type: 
  Country: None (occurrence: None)
  Receive Date: 20110621
  Receipt Date: 20110617
  Transmission Date: 20111010
  Serious: Yes (Death, Hospitalization)
  Sender: FDA-Public Use
  Company Number: CA-BRISTOL-MYERS SQUIBB COMPANY-15540644

PATIENT
  Age: 59 Year
  Sex: Male

DRUGS (1)
  1. IPILIMUMAB [Suspect]
     Indication: MALIGNANT MELANOMA
     Dosage: NO OF COURSES: 4(TOTALLY 4DOSES)
     Route: 042
     Dates: start: 20101102, end: 20110107

REACTIONS (3)
  - CARDIOPULMONARY FAILURE [None]
  - CARDIAC FAILURE CONGESTIVE [None]
  - POLYMYOSITIS [None]
